FAERS Safety Report 18638603 (Version 7)
Quarter: 2021Q4

REPORT INFORMATION
  Report Type: Spontaneous
  Country: US (occurrence: US)
  Receive Date: 20201218
  Receipt Date: 20211202
  Transmission Date: 20220304
  Serious: Yes (Other)
  Sender: FDA-Public Use
  Company Number: US-PFIZER INC-2020249134

PATIENT
  Age: 60 Year
  Sex: Male

DRUGS (2)
  1. LYRICA [Suspect]
     Active Substance: PREGABALIN
     Indication: Neuropathy peripheral
     Dosage: 160 MG, 3X/DAY
     Route: 048
  2. LYRICA [Suspect]
     Active Substance: PREGABALIN
     Indication: Polyneuropathy
     Dosage: 150 MG, 3X/DAY
     Route: 048

REACTIONS (6)
  - Limb injury [Unknown]
  - Joint injury [Unknown]
  - Thrombosis [Unknown]
  - Hypoacusis [Recovering/Resolving]
  - Product prescribing issue [Unknown]
  - Hypoaesthesia [Unknown]

NARRATIVE: CASE EVENT DATE: 20190101
